FAERS Safety Report 6358440-X (Version None)
Quarter: 2009Q3

REPORT INFORMATION
  Report Type: 
  Country: None (occurrence: None)
  Receive Date: 20090817
  Receipt Date: 20081104
  Transmission Date: 20100115
  Serious: No
  Sender: FDA-Public Use
  Company Number: 20085638

PATIENT
  Sex: Male

DRUGS (3)
  1. LIORESAL [Suspect]
     Indication: MUSCLE SPASTICITY
     Dosage: MCG,DAILY, INTRATHECAL
     Route: 037
  2. DILAUDID [Concomitant]
  3. MARCAINE [Concomitant]

REACTIONS (3)
  - CHILLS [None]
  - DIARRHOEA [None]
  - HYPERHIDROSIS [None]
